FAERS Safety Report 10040578 (Version 1)
Quarter: 2014Q1

REPORT INFORMATION
  Report Type: Report from Study
  Country: US (occurrence: US)
  Receive Date: 20140327
  Receipt Date: 20140327
  Transmission Date: 20141002
  Serious: Yes (Other)
  Sender: FDA-Public Use
  Company Number: US-ROCHE-1370882

PATIENT
  Sex: Male

DRUGS (2)
  1. ACTEMRA [Suspect]
     Indication: PRODUCT USED FOR UNKNOWN INDICATION
     Route: 042
  2. ACTEMRA [Suspect]
     Route: 042

REACTIONS (3)
  - Malaise [Unknown]
  - Pancreatitis [Unknown]
  - Vasculitis [Unknown]
